FAERS Safety Report 6055106-0 (Version None)
Quarter: 2009Q1

REPORT INFORMATION
  Report Type: 
  Country: None (occurrence: None)
  Receive Date: 20090128
  Receipt Date: 20081208
  Transmission Date: 20090719
  Serious: Yes (Hospitalization, Other)
  Sender: FDA-Public Use
  Company Number: PHHO2007MX15297

PATIENT
  Sex: Male

DRUGS (2)
  1. STALEVO 100 [Suspect]
     Indication: PARKINSON'S DISEASE
     Dosage: 3 TABLETS (150/37.5/200 MG) PER DAY.
     Route: 048
     Dates: start: 20060301
  2. SIFROL [Concomitant]
     Indication: PARKINSON'S DISEASE

REACTIONS (6)
  - BRONCHOSPASM [None]
  - DYSPHAGIA [None]
  - INCREASED UPPER AIRWAY SECRETION [None]
  - INFLAMMATION [None]
  - PERIPHERAL VASCULAR DISORDER [None]
  - VARICOSE VEIN OPERATION [None]
